FAERS Safety Report 6761786-4 (Version None)
Quarter: 2010Q2

REPORT INFORMATION
  Report Type: 
  Country: None (occurrence: None)
  Receive Date: 20100609
  Receipt Date: 20100603
  Transmission Date: 20101027
  Serious: Yes (Hospitalization, Disabling)
  Sender: FDA-Public Use
  Company Number: US-BAYER-201022714NA

PATIENT
  Sex: Female

DRUGS (1)
  1. BETASERON [Suspect]
     Indication: RELAPSING-REMITTING MULTIPLE SCLEROSIS
     Route: 058

REACTIONS (6)
  - ABASIA [None]
  - APHASIA [None]
  - ASTHENIA [None]
  - EYE ROLLING [None]
  - MULTIPLE SCLEROSIS [None]
  - PYREXIA [None]
